FAERS Safety Report 9457505 (Version 1)
Quarter: 2013Q3

REPORT INFORMATION
  Report Type: Spontaneous
  Country: AU (occurrence: None)
  Receive Date: 20130812
  Receipt Date: 20130812
  Transmission Date: 20140515
  Serious: Yes (Life-Threatening)
  Sender: FDA-Public Use
  Company Number: None

PATIENT
  Age: 70 Year
  Sex: Male
  Weight: 93 kg

DRUGS (1)
  1. CURAM DUO FORTE [Suspect]
     Indication: UPPER RESPIRATORY TRACT INFECTION
     Dosage: 825/ 125 MGS 1 TABLET TWICE DAILY TAKEN BY MOUTH
     Route: 048
     Dates: start: 20130801, end: 20130806

REACTIONS (9)
  - Chest discomfort [None]
  - Ocular hyperaemia [None]
  - Anxiety [None]
  - Dyspnoea [None]
  - Flushing [None]
  - Heart rate increased [None]
  - Hypopnoea [None]
  - Vomiting [None]
  - Pain [None]
